FAERS Safety Report 9848954 (Version 1)
Quarter: 2014Q1

REPORT INFORMATION
  Report Type: Spontaneous
  Country: ES (occurrence: ES)
  Receive Date: 20140128
  Receipt Date: 20140128
  Transmission Date: 20141002
  Serious: Yes (Other)
  Sender: FDA-Public Use
  Company Number: ES-ASTELLAS-2014EU000336

PATIENT
  Age: 61 Year
  Sex: Male

DRUGS (4)
  1. MODIGRAF [Suspect]
     Indication: LIVER TRANSPLANT
     Dosage: 4 MG, Q12 HOURS
     Route: 050
  2. MODIGRAF [Suspect]
     Dosage: 2.6 MG, Q12 HOURS
     Route: 065
  3. MYCOPHENOLATE MOFETIL [Suspect]
     Indication: LIVER TRANSPLANT
     Dosage: UNK
     Route: 065
  4. PREDNISONE /00044702/ [Suspect]
     Indication: LIVER TRANSPLANT
     Dosage: UNK
     Route: 065

REACTIONS (2)
  - Incorrect route of drug administration [Unknown]
  - Fistula [Unknown]
